FAERS Safety Report 7603085-4 (Version None)
Quarter: 2011Q3

REPORT INFORMATION
  Report Type: 
  Country: None (occurrence: None)
  Receive Date: 20110711
  Receipt Date: 20110711
  Transmission Date: 20111222
  Serious: No
  Sender: FDA-Public Use
  Company Number: None

PATIENT
  Age: 65 Year
  Sex: Male
  Weight: 105.6881 kg

DRUGS (1)
  1. PRADAXA [Suspect]
     Indication: ATRIAL FIBRILLATION
     Dosage: 1 CAPSULE TWICE DAILY
     Dates: start: 20110602, end: 20110706

REACTIONS (4)
  - CHEST PAIN [None]
  - DYSPEPSIA [None]
  - MIDDLE INSOMNIA [None]
  - ABDOMINAL DISCOMFORT [None]
